FAERS Safety Report 4395173-3 (Version None)
Quarter: 2004Q3

REPORT INFORMATION
  Report Type: 
  Country: None (occurrence: None)
  Receive Date: 20040706
  Receipt Date: 20040624
  Transmission Date: 20050211
  Serious: Yes (Hospitalization)
  Sender: FDA-Public Use
  Company Number: PL-JNJFOC-20040607244

PATIENT
  Age: 49 Year
  Sex: Male

DRUGS (1)
  1. PARACETAMOL (PARACETAMOL) TABLETS [Suspect]
     Indication: ABDOMINAL PAIN
     Dosage: 6 G, 1 IN 2 DAY, ORAL
     Route: 048

REACTIONS (21)
  - AGITATION [None]
  - CALCINOSIS [None]
  - CARDIAC MURMUR [None]
  - COAGULOPATHY [None]
  - EJECTION FRACTION DECREASED [None]
  - ELECTROLYTE IMBALANCE [None]
  - GASTRIC ULCER HAEMORRHAGE [None]
  - HEPATIC ENCEPHALOPATHY [None]
  - HEPATIC FAILURE [None]
  - HEPATOMEGALY [None]
  - HYPERTENSION [None]
  - JAUNDICE [None]
  - MALLORY-WEISS SYNDROME [None]
  - MITRAL VALVE INCOMPETENCE [None]
  - PANCREATIC DISORDER [None]
  - PNEUMONIA [None]
  - RENAL FAILURE [None]
  - SHOCK [None]
  - TACHYCARDIA [None]
  - UPPER GASTROINTESTINAL HAEMORRHAGE [None]
  - VENTRICULAR FAILURE [None]
